FAERS Safety Report 8231904-X (Version None)
Quarter: 2012Q1

REPORT INFORMATION
  Report Type: 
  Country: None (occurrence: None)
  Receive Date: 20120323
  Receipt Date: 20120321
  Transmission Date: 20120608
  Serious: Yes (Death, Hospitalization)
  Sender: FDA-Public Use
  Company Number: US-JNJFOC-20100508675

PATIENT
  Sex: Female
  Weight: 84.32 kg

DRUGS (21)
  1. ELMIRON [Suspect]
     Indication: CYSTITIS INTERSTITIAL
     Route: 048
  2. TORADOL [Suspect]
     Indication: PRODUCT USED FOR UNKNOWN INDICATION
     Route: 065
  3. HYDROCODONE BITARTRATE [Concomitant]
     Indication: ARTHRITIS
     Route: 065
     Dates: end: 20100201
  4. COMBIVENT [Concomitant]
     Route: 065
  5. ETOMIDATE [Concomitant]
     Route: 065
  6. ELMIRON [Suspect]
     Indication: BLADDER PAIN
     Route: 048
  7. HEPARIN [Suspect]
     Indication: PREMEDICATION
     Route: 058
  8. IMIPRAMINE HCL [Concomitant]
     Indication: BLADDER DISORDER
     Route: 065
     Dates: end: 20100201
  9. OMEPRAZOLE [Concomitant]
     Indication: GASTROOESOPHAGEAL REFLUX DISEASE
     Route: 065
     Dates: end: 20100201
  10. PEPCID [Concomitant]
     Route: 065
  11. FENTANYL [Concomitant]
     Route: 065
  12. VICODIN [Concomitant]
     Route: 065
  13. HEPARIN [Suspect]
     Indication: ANTICOAGULANT THERAPY
     Route: 042
     Dates: start: 20100208, end: 20100201
  14. HYDROCODONE BITARTRATE [Concomitant]
     Indication: PAIN
     Route: 065
     Dates: end: 20100201
  15. IMIPRAMINE HCL [Concomitant]
     Indication: DEPRESSION
     Route: 065
     Dates: end: 20100201
  16. NOVOLIN R [Concomitant]
     Route: 065
  17. ZOFRAN [Concomitant]
     Route: 065
  18. PROPOFOL [Concomitant]
     Route: 065
  19. VITAMIN K TAB [Concomitant]
     Route: 065
  20. NEOSYNEPHRIN-POS [Concomitant]
     Indication: HYPERTENSION
     Route: 065
  21. ANCEF [Suspect]
     Indication: PREMEDICATION
     Route: 042

REACTIONS (4)
  - POST PROCEDURAL HAEMORRHAGE [None]
  - COAGULOPATHY [None]
  - BLOOD DISORDER [None]
  - ORGAN FAILURE [None]
